FAERS Safety Report 14695794 (Version 1)
Quarter: 2018Q1

REPORT INFORMATION
  Report Type: Spontaneous
  Country: US (occurrence: US)
  Receive Date: 20180328
  Receipt Date: 20180328
  Transmission Date: 20180509
  Serious: Yes (Life-Threatening, Hospitalization, Disabling, Other)
  Sender: FDA-Public Use
  Company Number: None

PATIENT
  Age: 21 Year
  Sex: Female
  Weight: 135 kg

DRUGS (4)
  1. TYLENOL [Concomitant]
     Active Substance: ACETAMINOPHEN
  2. NUVARING [Suspect]
     Active Substance: ETHINYL ESTRADIOL\ETONOGESTREL
     Indication: MENSTRUAL CYCLE MANAGEMENT
     Dosage: QUANTITY:1 DIVIDE;OTHER FREQUENCY:MONTHLY;?
     Route: 067
     Dates: start: 20160502, end: 20170220
  3. COUMADIN [Concomitant]
     Active Substance: WARFARIN SODIUM
  4. MULTIVITAMIN [Concomitant]
     Active Substance: VITAMINS

REACTIONS (5)
  - Pulmonary thrombosis [None]
  - Impaired quality of life [None]
  - Pyrexia [None]
  - Gait inability [None]
  - Thrombosis [None]

NARRATIVE: CASE EVENT DATE: 20170220
